FAERS Safety Report 17118331 (Version 1)
Quarter: 2019Q4

REPORT INFORMATION
  Report Type: Spontaneous
  Country: NO (occurrence: NO)
  Receive Date: 20191205
  Receipt Date: 20191205
  Transmission Date: 20200122
  Serious: Yes (Life-Threatening)
  Sender: FDA-Public Use
  Company Number: NO-ROCHE-2475945

PATIENT
  Age: 50 Year
  Sex: Female

DRUGS (2)
  1. IRINOTECAN [Concomitant]
     Active Substance: IRINOTECAN
  2. AVASTIN [Suspect]
     Active Substance: BEVACIZUMAB
     Indication: COLON CANCER
     Dosage: INFUSION
     Route: 065
     Dates: start: 20191021

REACTIONS (3)
  - Intentional product use issue [Unknown]
  - Diverticular perforation [Recovered/Resolved]
  - Off label use [Unknown]
